FAERS Safety Report 7585407-6 (Version None)
Quarter: 2011Q2

REPORT INFORMATION
  Report Type: 
  Country: None (occurrence: None)
  Receive Date: 20110628
  Receipt Date: 20110628
  Transmission Date: 20111010
  Serious: Yes (Hospitalization, Other)
  Sender: FDA-Public Use
  Company Number: None

PATIENT
  Age: 46 Year
  Sex: Female
  Weight: 81.6475 kg

DRUGS (1)
  1. SEASONIQUE [Suspect]
     Indication: MENSTRUAL CYCLE MANAGEMENT
     Dates: start: 20100101, end: 20110605

REACTIONS (1)
  - CEREBROVASCULAR ACCIDENT [None]
